FAERS Safety Report 8268588-0 (Version None)
Quarter: 2012Q2

REPORT INFORMATION
  Report Type: 
  Country: None (occurrence: None)
  Receive Date: 20120409
  Receipt Date: 20120329
  Transmission Date: 20120825
  Serious: Yes (Other)
  Sender: FDA-Public Use
  Company Number: US-AMGEN-USASP2012020272

PATIENT
  Age: 72 Year
  Sex: Female

DRUGS (1)
  1. ENBREL [Suspect]
     Indication: RHEUMATOID ARTHRITIS
     Dosage: 50 MG, QWK
     Dates: start: 20000901, end: 20120311

REACTIONS (4)
  - HERNIA REPAIR [None]
  - BLOOD URINE PRESENT [None]
  - RECTAL HAEMORRHAGE [None]
  - ESCHERICHIA INFECTION [None]
